FAERS Safety Report 12411297 (Version 2)
Quarter: 2016Q3

REPORT INFORMATION
  Report Type: Spontaneous
  Country: JP (occurrence: JP)
  Receive Date: 20160527
  Receipt Date: 20160715
  Transmission Date: 20161109
  Serious: No
  Sender: FDA-Public Use
  Company Number: JP-009507513-1605JPN012921

PATIENT
  Age: 59 Year
  Sex: Male
  Weight: 63 kg

DRUGS (3)
  1. STROMECTOL [Suspect]
     Active Substance: IVERMECTIN
     Indication: ACARODERMATITIS
     Dosage: 15 MG, ONCE
     Route: 048
     Dates: start: 20160520, end: 20160520
  2. TALION (BEPOTASTINE BESYLATE) [Concomitant]
     Active Substance: BEPOTASTINE
     Indication: DERMATITIS
     Dosage: DIVIDED DOSE FREQUENCY UNKNOWN
     Route: 048
     Dates: start: 20160407, end: 20160520
  3. DERMOVATE [Concomitant]
     Active Substance: CLOBETASOL
     Indication: DERMATITIS
     Dosage: DAILY DOSAGE UNKNOWN
     Route: 061
     Dates: start: 20160407, end: 20160520

REACTIONS (2)
  - Scrotal oedema [Recovered/Resolved]
  - Overdose [Unknown]

NARRATIVE: CASE EVENT DATE: 20160520
